FAERS Safety Report 16650982 (Version 1)
Quarter: 2019Q3

REPORT INFORMATION
  Report Type: Spontaneous
  Country: US (occurrence: US)
  Receive Date: 20190731
  Receipt Date: 20190731
  Transmission Date: 20191004
  Serious: No
  Sender: FDA-Public Use
  Company Number: US-ASTRAZENECA-2019SE97738

PATIENT
  Sex: Male
  Weight: 81.6 kg

DRUGS (4)
  1. BEVESPI AEROSPHERE [Suspect]
     Active Substance: FORMOTEROL FUMARATE\GLYCOPYRROLATE
     Dosage: 9 MCG / 4.8 MCG TWO TIMES A DAY
     Route: 055
  2. SYMBICORT [Suspect]
     Active Substance: BUDESONIDE\FORMOTEROL FUMARATE DIHYDRATE
     Indication: DYSPNOEA
     Dosage: 160/4.5 MCG UNKNOWN UNKNOWN
     Route: 055
  3. ATORVASTATIN [Concomitant]
     Active Substance: ATORVASTATIN
     Indication: CEREBROVASCULAR ACCIDENT
     Route: 048
  4. TRELEGY ELLIPTA [Concomitant]
     Active Substance: FLUTICASONE FUROATE\UMECLIDINIUM BROMIDE\VILANTEROL TRIFENATATE
     Dosage: 2 PUFFS TWICE DAILY

REACTIONS (7)
  - Drug ineffective [Unknown]
  - Asthma [Unknown]
  - Vision blurred [Unknown]
  - Chronic obstructive pulmonary disease [Unknown]
  - Sinusitis [Unknown]
  - Body height decreased [Unknown]
  - Dyspnoea [Unknown]
